FAERS Safety Report 9132336 (Version 1)
Quarter: 2013Q1

REPORT INFORMATION
  Report Type: Spontaneous
  Country: US (occurrence: US)
  Receive Date: 20130301
  Receipt Date: 20130301
  Transmission Date: 20140127
  Serious: No
  Sender: FDA-Public Use
  Company Number: US-PFIZER INC-2013071265

PATIENT
  Sex: Female

DRUGS (2)
  1. ZOLOFT [Suspect]
     Route: 048
  2. ZOLOFT [Suspect]
     Dosage: UNK

REACTIONS (4)
  - Product quality issue [Unknown]
  - Lip blister [Unknown]
  - Throat irritation [Unknown]
  - Oesophagitis [Unknown]
